FAERS Safety Report 7547380-6 (Version None)
Quarter: 2011Q2

REPORT INFORMATION
  Report Type: 
  Country: None (occurrence: None)
  Receive Date: 20110614
  Receipt Date: 20110609
  Transmission Date: 20111010
  Serious: Yes (Life-Threatening, Hospitalization, Other)
  Sender: FDA-Public Use
  Company Number: DE-ABBOTT-11P-062-0731476-00

PATIENT
  Age: 17 Year
  Sex: Female

DRUGS (1)
  1. ADALIMUMAB [Suspect]
     Indication: SAPHO SYNDROME

REACTIONS (4)
  - DISSEMINATED TUBERCULOSIS [None]
  - SHOCK [None]
  - SEPSIS [None]
  - IMMUNE RECONSTITUTION SYNDROME [None]
